FAERS Safety Report 4885753-0 (Version None)
Quarter: 2006Q1

REPORT INFORMATION
  Report Type: 
  Country: None (occurrence: None)
  Receive Date: 20060117
  Receipt Date: 20060103
  Transmission Date: 20060701
  Serious: Yes (Other)
  Sender: FDA-Public Use
  Company Number: 2006002002

PATIENT
  Age: 63 Year
  Sex: Female
  Weight: 68 kg

DRUGS (7)
  1. GABAPENTIN [Suspect]
     Indication: ILL-DEFINED DISORDER
     Dosage: 900 MG (300  MG, 3 IN 1 D), ORAL
     Route: 048
     Dates: start: 20050929, end: 20051017
  2. LEVOTHYROXINE SODIUM [Concomitant]
  3. OMEPRAZOLE [Concomitant]
  4. ATORVASTATIN CALCIUM [Concomitant]
  5. CO-DYDRAMOL (DIHYDROCODEINE BITARTRATE, PARACETAMOL) [Concomitant]
  6. BENDROFLUMETHAIZIDE (BENDROFLUMETHIAZIDE) [Concomitant]
  7. ADCAL-D3 (CALCIUM CARBONATE, COLECALCIFEROL) [Concomitant]

REACTIONS (1)
  - NEUTROPENIA [None]
